FAERS Safety Report 9228401 (Version 1)
Quarter: 2013Q2

REPORT INFORMATION
  Report Type: Report from Study
  Country: GB (occurrence: GB)
  Receive Date: 20130412
  Receipt Date: 20130412
  Transmission Date: 20140414
  Serious: Yes (Disabling)
  Sender: FDA-Public Use
  Company Number: GB-ABBOTT-12P-167-0983527-00

PATIENT
  Age: 57 Year
  Sex: Female
  Weight: 98 kg

DRUGS (9)
  1. HUMIRA [Suspect]
     Indication: POLYARTHRITIS
     Route: 058
     Dates: start: 20120906
  2. STEROIDS [Concomitant]
     Indication: PRODUCT USED FOR UNKNOWN INDICATION
     Dosage: REDUCING DOSE
  3. PREDNISOLONE [Concomitant]
     Indication: POLYARTHRITIS
     Route: 048
  4. ALENDRONIC ACID [Concomitant]
     Indication: BONE DISORDER
     Route: 048
  5. ALENDRONIC ACID [Concomitant]
     Indication: PROPHYLAXIS
  6. CALCICHEW D3 [Concomitant]
     Indication: PRODUCT USED FOR UNKNOWN INDICATION
     Route: 048
  7. COCODAMOL [Concomitant]
     Indication: ANALGESIC THERAPY
     Route: 048
  8. TRAMODOL [Concomitant]
     Indication: ANALGESIC THERAPY
     Route: 048
  9. MOVICOL [Concomitant]
     Indication: CONSTIPATION
     Dosage: 1 OR 2 TABLETS, AS NEEDED, DAILY
     Route: 048

REACTIONS (21)
  - Fatigue [Not Recovered/Not Resolved]
  - Sciatica [Not Recovered/Not Resolved]
  - Drug effect decreased [Not Recovered/Not Resolved]
  - Dizziness [Unknown]
  - Fatigue [Not Recovered/Not Resolved]
  - Neuralgia [Not Recovered/Not Resolved]
  - Nerve compression [Not Recovered/Not Resolved]
  - Hypersomnia [Not Recovered/Not Resolved]
  - Bedridden [Not Recovered/Not Resolved]
  - Influenza like illness [Not Recovered/Not Resolved]
  - Pain [Not Recovered/Not Resolved]
  - Fatigue [Not Recovered/Not Resolved]
  - Diarrhoea [Recovered/Resolved]
  - Pain [Unknown]
  - Nervousness [Recovering/Resolving]
  - Rheumatoid arthritis [Not Recovered/Not Resolved]
  - Pain in extremity [Not Recovered/Not Resolved]
  - Musculoskeletal pain [Not Recovered/Not Resolved]
  - Arthralgia [Not Recovered/Not Resolved]
  - Arthralgia [Not Recovered/Not Resolved]
  - Pain [Not Recovered/Not Resolved]
